FAERS Safety Report 14238585 (Version 1)
Quarter: 2017Q4

REPORT INFORMATION
  Report Type: Spontaneous
  Country: PE (occurrence: PE)
  Receive Date: 20171130
  Receipt Date: 20171130
  Transmission Date: 20180321
  Serious: Yes (Other)
  Sender: FDA-Public Use
  Company Number: PE-APOTEX-2017AP022014

PATIENT
  Age: 80 Year
  Sex: Female

DRUGS (2)
  1. XANAX [Concomitant]
     Active Substance: ALPRAZOLAM
     Indication: PRODUCT USED FOR UNKNOWN INDICATION
     Dosage: UNK
     Route: 048
  2. SEROXAT FILM-COATED TABLET [Suspect]
     Active Substance: PAROXETINE HYDROCHLORIDE
     Indication: DEPRESSION
     Dosage: 20 MG, QD
     Route: 048

REACTIONS (4)
  - Incorrect dose administered [Unknown]
  - Malaise [Unknown]
  - Cardiac disorder [Recovering/Resolving]
  - Angina unstable [Recovering/Resolving]

NARRATIVE: CASE EVENT DATE: 201711
